FAERS Safety Report 5008618-2 (Version None)
Quarter: 2006Q2

REPORT INFORMATION
  Report Type: 
  Country: None (occurrence: None)
  Receive Date: 20060523
  Receipt Date: 20060516
  Transmission Date: 20061013
  Serious: Yes (Hospitalization)
  Sender: FDA-Public Use
  Company Number: FR-BRISTOL-MYERS SQUIBB COMPANY-13381769

PATIENT
  Age: 81 Year
  Sex: Female

DRUGS (4)
  1. SINEMET [Suspect]
     Indication: PARKINSON'S DISEASE
     Route: 048
  2. EXELON [Suspect]
     Indication: PARKINSON'S DISEASE
  3. BROMAZEPAM [Suspect]
     Indication: ANXIETY
  4. PAROXETINE [Suspect]
     Indication: DYSTHYMIC DISORDER

REACTIONS (3)
  - FALL [None]
  - HEAD INJURY [None]
  - LOSS OF CONSCIOUSNESS [None]
